FAERS Safety Report 8362762-0 (Version None)
Quarter: 2012Q2

REPORT INFORMATION
  Report Type: 
  Country: None (occurrence: None)
  Receive Date: 20120516
  Receipt Date: 20120508
  Transmission Date: 20120825
  Serious: Yes (Other)
  Sender: FDA-Public Use
  Company Number: PHHY2012IT040847

PATIENT
  Age: 80 Year
  Sex: Female

DRUGS (6)
  1. ZOMETA [Suspect]
     Indication: MULTIPLE MYELOMA
  2. SPORANOX [Concomitant]
     Dosage: 100 MG, ONCE DAILY
  3. PREDNISONE TAB [Concomitant]
     Dosage: 5 MG, ONCE DAILY
  4. AUGMENTIN [Concomitant]
     Dosage: 2 DF, DAILY
  5. NAPROXEN SODIUM [Concomitant]
     Indication: PAIN
     Dosage: 550 MG, BID
  6. AREDIA [Suspect]
     Indication: MULTIPLE MYELOMA

REACTIONS (7)
  - OSTEOLYSIS [None]
  - OEDEMA [None]
  - PAIN IN JAW [None]
  - OSTEONECROSIS OF JAW [None]
  - EXPOSED BONE IN JAW [None]
  - IMPAIRED HEALING [None]
  - GINGIVAL INFECTION [None]
